FAERS Safety Report 10976728 (Version 1)
Quarter: 2015Q1

REPORT INFORMATION
  Report Type: Spontaneous
  Country: US (occurrence: None)
  Receive Date: 20150226
  Receipt Date: 20150226
  Transmission Date: 20150721
  Serious: Yes (Disabling, Other)
  Sender: FDA-Public Use
  Company Number: 2013TUS002409

PATIENT
  Age: 60 Year
  Sex: Male

DRUGS (25)
  1. ACTOS [Suspect]
     Active Substance: PIOGLITAZONE HYDROCHLORIDE
     Indication: TYPE 1 DIABETES MELLITUS
     Route: 048
  2. AVANDARYL [Suspect]
     Active Substance: GLIMEPIRIDE\ROSIGLITAZONE MALEATE
     Dosage: 2 TABLETS, QD, ORAL
     Route: 048
     Dates: start: 2005, end: 2005
  3. FLAXSEED OIL (LINUM USITATISSIMUM SEED OIL) [Concomitant]
  4. ZESTRIL (LISINOPRIL) [Concomitant]
  5. ECOTRIN [Concomitant]
     Active Substance: ASPIRIN
  6. TRAMADOL HYDROCHLORIDE. [Concomitant]
     Active Substance: TRAMADOL HYDROCHLORIDE
  7. VITAMIN E /00110501/ (TOCOPHEROL) [Concomitant]
  8. GLIMEPIRIDE. [Concomitant]
     Active Substance: GLIMEPIRIDE
  9. LASIX [Concomitant]
     Active Substance: FUROSEMIDE
  10. AZITHROMYCIN [Concomitant]
     Active Substance: AZITHROMYCIN ANHYDROUS
  11. CENTRUM SILVER /01292501/ (ASCORBIC ACID, CALCIUM, MINERALS NOS, RETINOL, TOCOPHERYL ACETATE, VITAMIN B NOS, VITAMINS NOS, ZINC) [Concomitant]
  12. INSULIN [Concomitant]
     Active Substance: INSULIN NOS
  13. CRESTOR [Concomitant]
     Active Substance: ROSUVASTATIN CALCIUM
  14. PRILOSEC /00032601/ (FUROSEMIDE) [Concomitant]
  15. SPIRONOLACTONE. [Concomitant]
     Active Substance: SPIRONOLACTONE
  16. NITROSTAT (GLYCERYL TRINITRATE) [Concomitant]
  17. COENZYME Q10  (UBIDECARENONE) [Concomitant]
  18. CITRUCEL (METHYLCELLULOSE) [Concomitant]
  19. PLAVIX (CLOPIDOGREL BISULFATE) [Concomitant]
  20. METFORMIN HYDROCHLORIDE. [Concomitant]
     Active Substance: METFORMIN HYDROCHLORIDE
  21. VITAMIN C /00008001/ (ASCORBIC ACID) [Concomitant]
  22. B COMPLEX /00212701/ (NICOTINAMIDE, PHYRIDOXINE HYDROCHLORIDE, RIBOFLAVIN, THIAMINE HYDROCHLORIDE) [Concomitant]
  23. AVANDIA [Suspect]
     Active Substance: ROSIGLITAZONE MALEATE
     Indication: TYPE 1 DIABETES MELLITUS
     Route: 048
     Dates: start: 2006
  24. LEVITRA [Concomitant]
     Active Substance: VARDENAFIL HYDROCHLORIDE TRIHYDRATE
  25. BILBERRY /01397601/ (VACCINIUM MYRTILLUS) [Concomitant]

REACTIONS (3)
  - Dyspnoea exertional [None]
  - Oedema [None]
  - Cardiac failure congestive [None]
